FAERS Safety Report 9525177 (Version 1)
Quarter: 2013Q1

REPORT INFORMATION
  Report Type: Spontaneous
  Country: US (occurrence: None)
  Receive Date: 20130314
  Receipt Date: 20130314
  Transmission Date: 20140127
  Serious: No
  Sender: FDA-Public Use
  Company Number: 1212USA006426

PATIENT
  Age: 56 Year
  Sex: Female

DRUGS (3)
  1. VICTRELIS (BOCEPREVIR) CAPSULE, 200MG [Suspect]
     Indication: HEPATITIS C
     Dosage: 800 MG/EVERY 8 HOURS,ORAL
     Route: 048
  2. RIBAPAK (RIBAVIRIN) [Suspect]
  3. PEGASYS (PEGINTERFERON ALFA-2A) [Suspect]

REACTIONS (4)
  - Skin ulcer [None]
  - Oral herpes [None]
  - White blood cell count decreased [None]
  - Rash generalised [None]
